FAERS Safety Report 7829204-2 (Version None)
Quarter: 2011Q4

REPORT INFORMATION
  Report Type: 
  Country: None (occurrence: None)
  Receive Date: 20111020
  Receipt Date: 20111015
  Transmission Date: 20120403
  Serious: Yes (Death)
  Sender: FDA-Public Use
  Company Number: PHHY2011MX91237

PATIENT
  Sex: Male

DRUGS (2)
  1. EXFORGE [Suspect]
     Indication: HYPERTENSION
     Dosage: 1 DF/DAY, 160 MG VALS AND 10 MG AMLO
     Dates: start: 20041001
  2. ASPIRIN [Concomitant]

REACTIONS (1)
  - INFARCTION [None]
